FAERS Safety Report 5735941-6 (Version None)
Quarter: 2008Q2

REPORT INFORMATION
  Report Type: 
  Country: None (occurrence: None)
  Receive Date: 20080509
  Receipt Date: 20080423
  Transmission Date: 20081010
  Serious: Yes (Life-Threatening)
  Sender: FDA-Public Use
  Company Number: 2008S1006913

PATIENT
  Age: 16 Year
  Sex: Male

DRUGS (2)
  1. AMNESTEEM [Suspect]
     Dates: start: 20080101
  2. AMNESTEEM [Suspect]

REACTIONS (2)
  - ANGER [None]
  - SUICIDAL IDEATION [None]
